FAERS Safety Report 17837467 (Version 3)
Quarter: 2020Q2

REPORT INFORMATION
  Report Type: Report from Study
  Country: US (occurrence: US)
  Receive Date: 20200529
  Receipt Date: 20200618
  Transmission Date: 20200714
  Serious: Yes (Other)
  Sender: FDA-Public Use
  Company Number: US-TAIHO ONCOLOGY  INC-EU-2020-00968

PATIENT
  Age: 60 Year
  Sex: Female

DRUGS (24)
  1. LONSURF [Suspect]
     Active Substance: TIPIRACIL HYDROCHLORIDE\TRIFLURIDINE
     Indication: COLON CANCER
     Dosage: CYCLE 1
     Route: 048
     Dates: start: 20200316
  2. LONSURF [Suspect]
     Active Substance: TIPIRACIL HYDROCHLORIDE\TRIFLURIDINE
     Dosage: CYCLE 2
     Route: 048
     Dates: start: 20200601
  3. DURAGESIC [Concomitant]
     Active Substance: FENTANYL
     Dosage: FORM STRENGTH : 100 MCG/HR, PATCH
     Route: 062
  4. CHRONULAC [Concomitant]
     Active Substance: LACTULOSE
     Indication: CONSTIPATION
     Dosage: FORM STRENGTH : 10G/15ML SOLUTION, TAKE 15 ML (10G TOTAL) AS NEEDED UP TO 10 DAYS
     Route: 048
  5. LIDOCAINE. [Concomitant]
     Active Substance: LIDOCAINE
     Indication: MUCOSAL INFLAMMATION
     Dosage: 2 % SOLUTION 80 ML, SWISH AND SPIT 15 ML EVERY 6 HOURS AS NEEDED
  6. DILAUDID [Concomitant]
     Active Substance: HYDROMORPHONE HYDROCHLORIDE
     Indication: PAIN
     Dosage: AS NEEDED
     Route: 048
  7. NYSTATIN. [Concomitant]
     Active Substance: NYSTATIN
     Indication: SKIN CANDIDA
     Route: 061
  8. DECADRON [Concomitant]
     Active Substance: DEXAMETHASONE
     Dosage: 1 TABLET EVERY MORNING BY MOUTH ON DAYS 1-5 AND DAYS 8-12
     Route: 048
  9. LOMOTIL [Concomitant]
     Active Substance: ATROPINE SULFATE\DIPHENOXYLATE HYDROCHLORIDE
     Indication: DIARRHOEA
     Dosage: 2.5-0.025 MG, AS NEEDED
     Route: 048
  10. COMPAZINE [Concomitant]
     Active Substance: PROCHLORPERAZINE MALEATE
     Indication: NAUSEA
     Dosage: AS NEEDED
     Route: 048
  11. DECADRON [Concomitant]
     Active Substance: DEXAMETHASONE
     Indication: STOMATITIS
     Dosage: FORM STRENGTH : 0.5 MG/5 ML SOLUTION FOR MOUTH RINSE, TAKE 10 ML (1 MG TOTAL) BY MOUTH 4 TIMES A DAY
  12. ATIVAN [Concomitant]
     Active Substance: LORAZEPAM
     Indication: DEPRESSION
     Dosage: AS NEEDED
     Route: 048
  13. HEPARIN FLUSH (PORCINE) [Concomitant]
     Dosage: FORM STRENGTH 100 UNIT/ML, INTRACATHETER
     Route: 041
     Dates: start: 20180308
  14. DECADRON [Concomitant]
     Active Substance: DEXAMETHASONE
     Dosage: 1 TABLET BY MOUTH TWICE DAILY FOR 3 DAYS AFTER CHEMOTHERAPY (DAY 3 TO 5).
     Route: 048
  15. ZESTRIL [Concomitant]
     Active Substance: LISINOPRIL
     Route: 048
  16. MAXZIDE [Concomitant]
     Active Substance: HYDROCHLOROTHIAZIDE\TRIAMTERENE
     Dosage: FORM STRENGTH : 37.5-25 MG
     Route: 048
  17. DIPHENHYDRAMINE/ELIXIR [Concomitant]
     Dosage: FORM STRENGTH : DIPHENHYDRAMINE 12.5/5ML ELXIR 200 MG
  18. EPOGEN [Concomitant]
     Active Substance: ERYTHROPOIETIN
     Dosage: FORM STRENGTH : 40000 UNIT/ML
     Route: 058
  19. ZOFRAN [Concomitant]
     Active Substance: ONDANSETRON HYDROCHLORIDE
     Indication: NAUSEA
     Dosage: ORALLY DISINTEGRATING TABLET, AS NEEDED.
     Route: 048
  20. ZOFRAN [Concomitant]
     Active Substance: ONDANSETRON HYDROCHLORIDE
     Indication: VOMITING
  21. PROTONIX [Concomitant]
     Active Substance: PANTOPRAZOLE SODIUM
     Dosage: EVERY MORNING BEFORE BREAKFAST
     Route: 048
  22. HEPARIN FLUSH (PORCINE) [Concomitant]
     Dosage: FORM STRENGTH 100 UNIT/ML, INTRACATHETER
     Route: 041
  23. MAGNESIUM MALATE. [Concomitant]
     Active Substance: MAGNESIUM MALATE
     Dosage: FORM STRENGTH :1250 (141.7 MG)
     Route: 048
  24. NARCAN [Concomitant]
     Active Substance: NALOXONE HYDROCHLORIDE
     Indication: DRUG DEPENDENCE
     Dosage: 1 SPRAY IN 1 NOSTRIL WAS GIVEN AND SECOND DOSE CAN BE GIVEN IN 3 MINUTES
     Route: 045

REACTIONS (5)
  - Anaemia [Recovering/Resolving]
  - Rash [Unknown]
  - Diarrhoea [Not Recovered/Not Resolved]
  - Drug intolerance [Not Recovered/Not Resolved]
  - Constipation [Not Recovered/Not Resolved]

NARRATIVE: CASE EVENT DATE: 20200425
